FAERS Safety Report 9230020 (Version 3)
Quarter: 2014Q1

REPORT INFORMATION
  Report Type: Spontaneous
  Country: US (occurrence: US)
  Receive Date: 20130415
  Receipt Date: 20140217
  Transmission Date: 20141002
  Serious: Yes (Death, Hospitalization)
  Sender: FDA-Public Use
  Company Number: US-JNJFOC-20130406488

PATIENT
  Age: 62 Year
  Sex: Male
  Weight: 88 kg

DRUGS (6)
  1. STELARA [Suspect]
     Indication: PSORIASIS
     Dosage: 1 ST DOSE
     Route: 058
     Dates: start: 201302
  2. STELARA [Suspect]
     Indication: PSORIASIS
     Dosage: 2 ND DOSE
     Route: 058
     Dates: start: 20130222
  3. STELARA [Suspect]
     Indication: PSORIASIS
     Dosage: 1 ST DOSE
     Route: 058
     Dates: start: 20130128
  4. STELARA [Suspect]
     Indication: PSORIASIS
     Dosage: 2 ND DOSE
     Route: 058
     Dates: start: 20130222
  5. STELARA [Suspect]
     Indication: PSORIASIS
     Dosage: 1 ST DOSE
     Route: 058
     Dates: start: 20130128
  6. STELARA [Suspect]
     Indication: PSORIASIS
     Dosage: 1 ST DOSE
     Route: 058
     Dates: start: 201302

REACTIONS (2)
  - Staphylococcal infection [Fatal]
  - Fall [Fatal]
